FAERS Safety Report 15021668 (Version 1)
Quarter: 2018Q2

REPORT INFORMATION
  Report Type: Spontaneous
  Country: GB (occurrence: GB)
  Receive Date: 20180618
  Receipt Date: 20180618
  Transmission Date: 20180711
  Serious: Yes (Other)
  Sender: FDA-Public Use
  Company Number: GB-TEVA-2018-GB-910723

PATIENT
  Age: 47 Year
  Sex: Female
  Weight: 74.38 kg

DRUGS (8)
  1. RAMIPRIL. [Concomitant]
     Active Substance: RAMIPRIL
  2. GABAPENTIN. [Concomitant]
     Active Substance: GABAPENTIN
  3. MST CONTINUS [Concomitant]
     Active Substance: MORPHINE SULFATE
  4. GLUCOPHAGE [Concomitant]
     Active Substance: METFORMIN HYDROCHLORIDE
     Dosage: 500 MILLIGRAM DAILY;
  5. MST CONTINUS [Concomitant]
     Active Substance: MORPHINE SULFATE
  6. ESCITALOPRAM [Concomitant]
     Active Substance: ESCITALOPRAM OXALATE
  7. ATORVASTATIN CALCIUM. [Suspect]
     Active Substance: ATORVASTATIN CALCIUM
     Indication: HYPERCHOLESTEROLAEMIA
     Route: 048
     Dates: start: 2007
  8. AMITRIPTYLINE HYDROCHLORIDE. [Concomitant]
     Active Substance: AMITRIPTYLINE HYDROCHLORIDE

REACTIONS (5)
  - Foot and mouth disease [Unknown]
  - Pruritus [Unknown]
  - Rash macular [Unknown]
  - Rash papular [Unknown]
  - Acne [Unknown]

NARRATIVE: CASE EVENT DATE: 20170901
